FAERS Safety Report 10471805 (Version 4)
Quarter: 2014Q4

REPORT INFORMATION
  Report Type: Report from Study
  Country: DE (occurrence: DE)
  Receive Date: 20140924
  Receipt Date: 20141127
  Transmission Date: 20150528
  Serious: Yes (Death, Life-Threatening, Hospitalization)
  Sender: FDA-Public Use
  Company Number: PHHY2014DE122718

PATIENT
  Sex: Male
  Weight: 83 kg

DRUGS (2)
  1. ULTIBRO [Suspect]
     Active Substance: GLYCOPYRRONIUM\INDACATEROL
     Indication: CHRONIC OBSTRUCTIVE PULMONARY DISEASE
     Dosage: 1 DF, QD
     Route: 055
     Dates: start: 20140212, end: 20140618
  2. SALBUHEXAL [Suspect]
     Active Substance: ALBUTEROL
     Indication: CHRONIC OBSTRUCTIVE PULMONARY DISEASE
     Dosage: 100 UG, PRN
     Route: 055
     Dates: start: 20140212, end: 20140618

REACTIONS (8)
  - Renal failure [Fatal]
  - Pleural effusion [Recovering/Resolving]
  - Blood creatinine increased [Unknown]
  - Cystitis [Recovering/Resolving]
  - Pneumonia [Recovering/Resolving]
  - Urinary retention [Recovering/Resolving]
  - Dysuria [Unknown]
  - C-reactive protein increased [Unknown]

NARRATIVE: CASE EVENT DATE: 20140619
